FAERS Safety Report 5770003-3 (Version None)
Quarter: 2008Q2

REPORT INFORMATION
  Report Type: 
  Country: None (occurrence: None)
  Receive Date: 20080613
  Receipt Date: 20080417
  Transmission Date: 20081010
  Serious: No
  Sender: FDA-Public Use
  Company Number: US-ABBOTT-08P-163-0447931-00

PATIENT
  Sex: Female
  Weight: 42.676 kg

DRUGS (5)
  1. HUMIRA [Suspect]
     Indication: CROHN'S DISEASE
     Dosage: LOADING DOSE
     Route: 058
     Dates: start: 20070601
  2. HUMIRA [Suspect]
     Route: 058
     Dates: start: 20070601, end: 20070601
  3. HUMIRA [Suspect]
     Route: 058
     Dates: start: 20070601
  4. VITAMINS AND SUPPLEMENTS [Concomitant]
     Indication: VITAMIN SUPPLEMENTATION
     Route: 048
  5. ZONISADINE [Concomitant]
     Indication: CROHN'S DISEASE
     Route: 048

REACTIONS (1)
  - ACCIDENTAL EXPOSURE [None]
